FAERS Safety Report 9841086 (Version 1)
Quarter: 2014Q1

REPORT INFORMATION
  Report Type: Spontaneous
  Country: DE (occurrence: DE)
  Receive Date: 20140124
  Receipt Date: 20140124
  Transmission Date: 20141002
  Serious: Yes (Death)
  Sender: FDA-Public Use
  Company Number: DE-B.I. PHARMACEUTICALS,INC./RIDGEFIELD-2014-BI-02723DE

PATIENT
  Age: 84 Year
  Sex: Female
  Weight: 54 kg

DRUGS (4)
  1. PRADAXA [Suspect]
     Indication: ATRIAL FIBRILLATION
     Dosage: 220 MG
     Route: 048
     Dates: start: 201307, end: 20131231
  2. BISOPROLOL [Concomitant]
     Dosage: 5 MG
  3. HCT 25 [Concomitant]
     Dosage: 1 ANZ
     Route: 048
  4. SPIRONOLACTON 25 [Concomitant]
     Dosage: 1 ANZ
     Route: 048

REACTIONS (4)
  - Blood product transfusion [Fatal]
  - Coagulopathy [Fatal]
  - Post procedural haemorrhage [Fatal]
  - Intra-abdominal haemorrhage [Fatal]
